FAERS Safety Report 13947871 (Version 1)
Quarter: 2017Q3

REPORT INFORMATION
  Report Type: Spontaneous
  Country: US (occurrence: US)
  Receive Date: 20170908
  Receipt Date: 20170908
  Transmission Date: 20171128
  Serious: Yes (Hospitalization)
  Sender: FDA-Public Use
  Company Number: US-ASTRAZENECA-2016SF23490

PATIENT
  Sex: Female

DRUGS (1)
  1. ZOMIG [Suspect]
     Active Substance: ZOLMITRIPTAN
     Indication: MIGRAINE
     Dosage: ONE TABLET ONCE DAILY FOR HEADACHES MAY REPEAT IN TWO HOURS IF HEADACHE PERSISTS
     Route: 048
     Dates: start: 20160205

REACTIONS (3)
  - Nausea [Unknown]
  - Vomiting [Unknown]
  - Chest pain [Unknown]
